FAERS Safety Report 17554917 (Version 1)
Quarter: 2020Q1

REPORT INFORMATION
  Report Type: Spontaneous
  Country: US (occurrence: US)
  Receive Date: 20200318
  Receipt Date: 20200318
  Transmission Date: 20200409
  Serious: No
  Sender: FDA-Public Use
  Company Number: US-PFIZER INC-2018519084

PATIENT
  Age: 30 Year

DRUGS (1)
  1. PRISTIQ EXTENDED-RELEASE [Suspect]
     Active Substance: DESVENLAFAXINE SUCCINATE
     Indication: AFFECTIVE DISORDER
     Dosage: 50 MG, DAILY (PO QD MOOD)
     Route: 048

REACTIONS (1)
  - Withdrawal syndrome [Unknown]
